FAERS Safety Report 8561660-7 (Version None)
Quarter: 2012Q3

REPORT INFORMATION
  Report Type: 
  Country: None (occurrence: None)
  Receive Date: 20120802
  Receipt Date: 20120627
  Transmission Date: 20120928
  Serious: No
  Sender: FDA-Public Use
  Company Number: US-ASTRAZENECA-2012SE43507

PATIENT
  Age: 80 Year
  Sex: Female
  Weight: 56.2 kg

DRUGS (2)
  1. NEXIUM [Suspect]
     Indication: GASTROOESOPHAGEAL REFLUX DISEASE
     Route: 048
     Dates: start: 20120425
  2. OMEPRAZOLE [Suspect]
     Route: 048

REACTIONS (6)
  - CONSTIPATION [None]
  - TINNITUS [None]
  - DIARRHOEA [None]
  - HYPERSENSITIVITY [None]
  - PALPITATIONS [None]
  - ADVERSE EVENT [None]
